FAERS Safety Report 6801968-6 (Version None)
Quarter: 2010Q2

REPORT INFORMATION
  Report Type: 
  Country: None (occurrence: None)
  Receive Date: 20100629
  Receipt Date: 20100617
  Transmission Date: 20101027
  Serious: Yes (Hospitalization, Other)
  Sender: FDA-Public Use
  Company Number: GB-PFIZER INC-2010075834

PATIENT
  Sex: Female

DRUGS (3)
  1. SILDENAFIL CITRATE [Suspect]
     Indication: PORTOPULMONARY HYPERTENSION
     Dosage: 50 MG, 3X/DAY
  2. METOPROLOL [Suspect]
     Dosage: 25 MG, SINGLE
     Route: 048
  3. BOSENTAN [Concomitant]
     Dosage: 62.5 MG, 2X/DAY

REACTIONS (19)
  - ABDOMINAL DISTENSION [None]
  - BRADYCARDIA [None]
  - BUNDLE BRANCH BLOCK LEFT [None]
  - CARDIAC FAILURE CONGESTIVE [None]
  - CARDIO-RESPIRATORY ARREST [None]
  - CARDIOMEGALY [None]
  - CHEST PAIN [None]
  - DYSPNOEA [None]
  - EYE SWELLING [None]
  - HYPERTENSION [None]
  - HYPOXIA [None]
  - LIVER FUNCTION TEST ABNORMAL [None]
  - METABOLIC ACIDOSIS [None]
  - OEDEMA [None]
  - OEDEMA PERIPHERAL [None]
  - PERIPHERAL COLDNESS [None]
  - SUPRAVENTRICULAR TACHYCARDIA [None]
  - VENOUS PRESSURE JUGULAR INCREASED [None]
  - VOMITING [None]
